FAERS Safety Report 21278496 (Version 4)
Quarter: 2024Q3

REPORT INFORMATION
  Report Type: Report from Study
  Country: US (occurrence: US)
  Receive Date: 20220831
  Receipt Date: 20240904
  Transmission Date: 20241016
  Serious: Yes (Hospitalization, Other)
  Sender: TAKEDA
  Company Number: US-TAKEDA-US202022182

PATIENT
  Sex: Male

DRUGS (2)
  1. HUMAN IMMUNOGLOBULIN G [Suspect]
     Active Substance: HUMAN IMMUNOGLOBULIN G
     Indication: Immunodeficiency common variable
     Dosage: 32 GRAM, Q2WEEKS
     Route: 065
  2. HUMAN IMMUNOGLOBULIN G [Suspect]
     Active Substance: HUMAN IMMUNOGLOBULIN G
     Indication: Primary immunodeficiency syndrome
     Dosage: 32 GRAM, Q2WEEKS
     Route: 058

REACTIONS (12)
  - Pulmonary mass [Unknown]
  - Interstitial lung disease [Unknown]
  - Arthritis [Unknown]
  - Gastrointestinal disorder [Unknown]
  - Inability to afford medication [Unknown]
  - Weight decreased [Unknown]
  - Neuralgia [Unknown]
  - Lung disorder [Not Recovered/Not Resolved]
  - Fungal infection [Unknown]
  - Scar [Unknown]
  - Weight increased [Unknown]
  - Injection site haemorrhage [Unknown]
